FAERS Safety Report 5078669-0 (Version None)
Quarter: 2006Q3

REPORT INFORMATION
  Report Type: 
  Country: None (occurrence: None)
  Receive Date: 20060809
  Receipt Date: 20060724
  Transmission Date: 20061208
  Serious: Yes (Hospitalization)
  Sender: FDA-Public Use
  Company Number: DSA_28516_2006

PATIENT
  Age: 34 Year
  Sex: Female

DRUGS (2)
  1. TAVOR [Suspect]
     Dosage: 4 MG ONCE PO
     Route: 048
     Dates: start: 20060721, end: 20060721
  2. ZOPICLONE [Suspect]
     Dosage: 75 MG ONCE PO
     Route: 048
     Dates: start: 20060721, end: 20060721

REACTIONS (4)
  - MULTIPLE DRUG OVERDOSE [None]
  - SOMNOLENCE [None]
  - SUICIDE ATTEMPT [None]
  - TACHYCARDIA [None]
